FAERS Safety Report 7585627-0 (Version None)
Quarter: 2011Q2

REPORT INFORMATION
  Report Type: 
  Country: None (occurrence: None)
  Receive Date: 20110624
  Receipt Date: 20110607
  Transmission Date: 20111010
  Serious: Yes (Hospitalization)
  Sender: FDA-Public Use
  Company Number: 2011MA007234

PATIENT
  Age: 32 Year
  Sex: Male

DRUGS (2)
  1. CLOZARIL [Suspect]
     Dosage: 700 MG, PO
     Route: 048
     Dates: start: 20060601
  2. DIAZEPAM [Suspect]
     Dates: start: 20060601, end: 20060601

REACTIONS (1)
  - OVERDOSE [None]
